FAERS Safety Report 10954468 (Version 2)
Quarter: 2015Q1

REPORT INFORMATION
  Report Type: Report from Study
  Country: US (occurrence: US)
  Receive Date: 20150325
  Receipt Date: 20150331
  Transmission Date: 20150721
  Serious: Yes (Hospitalization)
  Sender: FDA-Public Use
  Company Number: US-GLAXOSMITHKLINE-US2015035020

PATIENT
  Age: 81 Year
  Sex: Female
  Weight: 52.4 kg

DRUGS (25)
  1. RESTASIS [Concomitant]
     Active Substance: CYCLOSPORINE
     Dosage: 0.05 GTT, UNK
     Route: 047
     Dates: start: 20131015
  2. ACETAMINOPHEN. [Concomitant]
     Active Substance: ACETAMINOPHEN
     Dosage: 650 MG, UNK
     Route: 048
     Dates: start: 20150211, end: 20150215
  3. LORATADINE. [Concomitant]
     Active Substance: LORATADINE
     Dosage: 10 MG, UNK
     Route: 048
     Dates: start: 20150212, end: 20150215
  4. LORAZEPAM. [Concomitant]
     Active Substance: LORAZEPAM
     Indication: VOMITING
     Dosage: 0.5 MG, UNK
     Route: 048
     Dates: start: 20150309
  5. MUPIROCIN. [Concomitant]
     Active Substance: MUPIROCIN
     Dosage: 2 UNK, UNK
     Route: 061
     Dates: start: 20150108
  6. MSIR [Concomitant]
     Active Substance: MORPHINE SULFATE
     Dosage: 15 MG, UNK
     Route: 048
     Dates: start: 20150214
  7. LEVOTHYROXINE [Concomitant]
     Active Substance: LEVOTHYROXINE
     Dosage: 75 MG, UNK
     Route: 048
     Dates: start: 20140320
  8. PROMETHEGAN [Concomitant]
     Active Substance: PROMETHAZINE HYDROCHLORIDE
     Dosage: 25 MG, UNK
     Route: 054
     Dates: start: 20140530, end: 20150130
  9. CETRIZINE [Concomitant]
     Active Substance: CETIRIZINE HYDROCHLORIDE
     Dosage: 10 MG, UNK
     Route: 048
     Dates: start: 2003
  10. CEFTRIAXONE. [Concomitant]
     Active Substance: CEFTRIAXONE
     Dosage: 1 G, UNK
     Route: 042
     Dates: start: 20150212, end: 20150215
  11. TRIAMCINOLONE [Concomitant]
     Active Substance: TRIAMCINOLONE
     Dosage: 0.1 UNK, UNK
     Route: 061
     Dates: start: 20150105, end: 20150120
  12. MORPHINE [Concomitant]
     Active Substance: MORPHINE
     Dosage: 2 MG, UNK
     Route: 042
     Dates: start: 20150212, end: 20150214
  13. ONDANSETRON [Concomitant]
     Active Substance: ONDANSETRON
     Dosage: 4-8 MG, TID
     Route: 048
     Dates: start: 20140515, end: 20150214
  14. DOXYCYCLINE. [Concomitant]
     Active Substance: DOXYCYCLINE
     Dosage: 100 MG, UNK
     Route: 048
     Dates: start: 20150215
  15. TRAMETINIB [Suspect]
     Active Substance: TRAMETINIB
     Dosage: 2 MG, UNK
     Route: 048
     Dates: start: 20150223
  16. LOSARTAN [Concomitant]
     Active Substance: LOSARTAN
     Dosage: 50 - 100 MG UNK
     Route: 048
     Dates: start: 20140520, end: 20150213
  17. LORAZEPAM. [Concomitant]
     Active Substance: LORAZEPAM
     Indication: NAUSEA
     Dosage: 0.5 MG, UNK
     Route: 048
     Dates: start: 20150309
  18. VANCOMYCIN [Concomitant]
     Active Substance: VANCOMYCIN
     Dosage: 750 MG, UNK
     Route: 042
     Dates: start: 20150212, end: 20150215
  19. SIMVASTIN [Concomitant]
     Active Substance: SIMVASTATIN
     Dosage: 10 MG, UNK
     Route: 048
     Dates: start: 20130520, end: 20150204
  20. CENTRUM SILVER [Concomitant]
     Active Substance: VITAMINS
     Dosage: 1 UNK, UNK
     Route: 048
     Dates: start: 2008
  21. VITAMIN D3 [Concomitant]
     Active Substance: CHOLECALCIFEROL
     Dosage: 1000 UNK UNK
     Route: 048
     Dates: start: 2010
  22. ZOLPIDEM [Concomitant]
     Active Substance: ZOLPIDEM\ZOLPIDEM TARTRATE
     Dosage: 2.5 MG, UNK
     Route: 048
     Dates: start: 20150212, end: 20150212
  23. CALTRATE VITAMINE D3 [Concomitant]
     Active Substance: CALCIUM CARBONATE\VITAMIN D
     Dosage: 600 MG, UNK
     Route: 048
     Dates: start: 1987
  24. FISH OIL [Concomitant]
     Active Substance: FISH OIL
     Dosage: 1000 MG, UNK
     Route: 048
     Dates: start: 2007
  25. OMEPRAZOLE. [Concomitant]
     Active Substance: OMEPRAZOLE
     Dosage: 20 MG, UNK
     Route: 048
     Dates: start: 20150212, end: 20150214

REACTIONS (4)
  - Nausea [Unknown]
  - Decreased appetite [Unknown]
  - Febrile neutropenia [Unknown]
  - Dehydration [Unknown]

NARRATIVE: CASE EVENT DATE: 20150311
